FAERS Safety Report 21252993 (Version 1)
Quarter: 2022Q3

REPORT INFORMATION
  Report Type: Spontaneous
  Country: US (occurrence: US)
  Receive Date: 20220825
  Receipt Date: 20220825
  Transmission Date: 20221027
  Serious: Yes (Other)
  Sender: FDA-Public Use
  Company Number: US-TEVA-2022-US-2066613

PATIENT
  Age: 9 Day

DRUGS (1)
  1. DOXEPIN [Suspect]
     Active Substance: DOXEPIN
     Indication: Insomnia
     Dosage: 35 MILLIGRAM DAILY; AT BEDTIME
     Route: 063

REACTIONS (6)
  - Poor feeding infant [Unknown]
  - Dysphagia [Unknown]
  - Vomiting [Unknown]
  - Hypotonia [Unknown]
  - Weight decreased [Unknown]
  - Exposure via breast milk [Unknown]
